FAERS Safety Report 6720049-3 (Version None)
Quarter: 2010Q2

REPORT INFORMATION
  Report Type: 
  Country: None (occurrence: None)
  Receive Date: 20100511
  Receipt Date: 20100507
  Transmission Date: 20101027
  Serious: Yes (Other)
  Sender: FDA-Public Use
  Company Number: CHPA2010US07849

PATIENT
  Age: 69 Year
  Sex: Female

DRUGS (3)
  1. CONTROL PLP (NCH) [Suspect]
     Indication: SMOKING CESSATION THERAPY
     Dosage: 21 MG, QD
     Route: 062
     Dates: start: 20100501
  2. PREDNISONE [Interacting]
  3. VICODIN [Concomitant]

REACTIONS (15)
  - DRUG INTERACTION [None]
  - FEELING HOT [None]
  - FEELING JITTERY [None]
  - HEADACHE [None]
  - HEART RATE INCREASED [None]
  - HYPERHIDROSIS [None]
  - INSOMNIA [None]
  - NERVOUSNESS [None]
  - OVERDOSE [None]
  - PAIN IN EXTREMITY [None]
  - PRURITUS [None]
  - RESTLESSNESS [None]
  - SWELLING [None]
  - TREATMENT NONCOMPLIANCE [None]
  - TREMOR [None]
